FAERS Safety Report 6696426-6 (Version None)
Quarter: 2010Q2

REPORT INFORMATION
  Report Type: 
  Country: None (occurrence: None)
  Receive Date: 20100426
  Receipt Date: 20100413
  Transmission Date: 20101027
  Serious: Yes (Death, Other)
  Sender: FDA-Public Use
  Company Number: JP-ROCHE-697829

PATIENT
  Age: 75 Year
  Sex: Male

DRUGS (3)
  1. XELODA [Suspect]
     Indication: LARGE INTESTINE CARCINOMA
     Dosage: REPORTED AS XELODA 300, STOP DATE: 2010
     Route: 048
     Dates: start: 20100201
  2. AVASTIN [Suspect]
     Indication: LARGE INTESTINE CARCINOMA
     Dosage: DOSAGE IS UNCERTAIN, STOP DATE: 2010
     Route: 041
     Dates: start: 20100201
  3. ELPLAT [Concomitant]
     Dosage: DOSAGE IS UNCERTAIN, STOP DATE: 2010
     Route: 041
     Dates: start: 20100201

REACTIONS (2)
  - DIARRHOEA [None]
  - GENERAL PHYSICAL HEALTH DETERIORATION [None]
